FAERS Safety Report 9767482 (Version 1)
Quarter: 2013Q4

REPORT INFORMATION
  Report Type: Spontaneous
  Country: US (occurrence: None)
  Receive Date: 20131213
  Receipt Date: 20131213
  Transmission Date: 20140711
  Serious: Yes (Other)
  Sender: FDA-Public Use
  Company Number: 2013SA025959

PATIENT
  Age: 38 Year
  Sex: Female

DRUGS (1)
  1. CAPZASIN HP CREME [Suspect]
     Indication: ARTHRALGIA
     Route: 061

REACTIONS (4)
  - Burning sensation [None]
  - Blister [None]
  - Insomnia [None]
  - Application site pain [None]
